FAERS Safety Report 23479127 (Version 4)
Quarter: 2024Q3

REPORT INFORMATION
  Report Type: Spontaneous
  Country: US (occurrence: US)
  Receive Date: 20240205
  Receipt Date: 20240823
  Transmission Date: 20241017
  Serious: Yes (Hospitalization, Other)
  Sender: NOVARTIS
  Company Number: US-002147023-NVSC2024US023394

PATIENT
  Age: 75 Year
  Sex: Male

DRUGS (2)
  1. PROMACTA [Suspect]
     Active Substance: ELTROMBOPAG OLAMINE
     Indication: Anaemia folate deficiency
     Dosage: 12.5 MG, QD
     Route: 048
     Dates: start: 202207
  2. PROMACTA [Suspect]
     Active Substance: ELTROMBOPAG OLAMINE
     Indication: Thrombocytopenia
     Dosage: 12.5 MG, QOD (CONTINUED THROUGH ADMISSION)
     Route: 048

REACTIONS (3)
  - COVID-19 pneumonia [Unknown]
  - Urinary tract infection [Unknown]
  - Respiratory failure [Unknown]

NARRATIVE: CASE EVENT DATE: 20240731
